FAERS Safety Report 8826573 (Version 1)
Quarter: 2012Q4

REPORT INFORMATION
  Report Type: 
  Country: MX (occurrence: MX)
  Receive Date: 20121007
  Receipt Date: 20121007
  Transmission Date: 20130627
  Serious: Yes (Hospitalization, Other)
  Sender: FDA-Public Use
  Company Number: PHHY2012MX087089

PATIENT
  Age: 63 Year
  Sex: Female

DRUGS (3)
  1. EXFORGE [Suspect]
     Indication: HYPERTENSION
     Dosage: 1 tablet (160/5 mg) daily
     Dates: start: 20120522, end: 20120907
  2. INSULIN [Concomitant]
     Indication: DIABETES MELLITUS
     Dosage: 27 IU at morning, 20 IU at afternoon and 20 IU at evening
     Dates: start: 201001
  3. EXACTOS [Concomitant]
     Indication: DIABETES MELLITUS
     Dosage: 30 mg daily
     Dates: start: 201208

REACTIONS (4)
  - Blood glucose decreased [Recovered/Resolved]
  - Malaise [Recovered/Resolved]
  - Fatigue [Recovered/Resolved]
  - Hypotension [Recovered/Resolved]
